FAERS Safety Report 7393484-0 (Version None)
Quarter: 2011Q2

REPORT INFORMATION
  Report Type: 
  Country: None (occurrence: None)
  Receive Date: 20110405
  Receipt Date: 20110304
  Transmission Date: 20111010
  Serious: Yes (Hospitalization, Other)
  Sender: FDA-Public Use
  Company Number: US-BAYER-201036993NA

PATIENT
  Sex: Female
  Weight: 91.61 kg

DRUGS (6)
  1. YAZ [Suspect]
     Indication: CONTRACEPTION
  2. YASMIN [Suspect]
     Indication: CONTRACEPTION
     Dates: start: 20060601, end: 20080815
  3. YAZ [Suspect]
     Indication: ACNE
  4. OCELLA [Suspect]
     Indication: ACNE
  5. YASMIN [Suspect]
     Indication: ACNE
     Dosage: UNK
     Dates: start: 20080101, end: 20080701
  6. OCELLA [Suspect]
     Indication: CONTRACEPTION
     Dates: start: 20080901, end: 20100415

REACTIONS (3)
  - HEADACHE [None]
  - VISUAL IMPAIRMENT [None]
  - CEREBROVASCULAR ACCIDENT [None]
